FAERS Safety Report 19371391 (Version 1)
Quarter: 2021Q2

REPORT INFORMATION
  Report Type: Spontaneous
  Country: US (occurrence: US)
  Receive Date: 20210603
  Receipt Date: 20210603
  Transmission Date: 20210717
  Serious: No
  Sender: FDA-Public Use
  Company Number: US-SA-2021SA178645

PATIENT
  Sex: Male

DRUGS (3)
  1. DUPIXENT [Suspect]
     Active Substance: DUPILUMAB
     Indication: DERMATITIS ATOPIC
     Dosage: 300 MG, QOW
     Route: 058
  2. DUPIXENT [Suspect]
     Active Substance: DUPILUMAB
     Indication: TYPE V HYPERLIPIDAEMIA
     Dosage: 300 MG, Q3W
  3. DUPIXENT [Suspect]
     Active Substance: DUPILUMAB
     Indication: BENIGN PROSTATIC HYPERPLASIA

REACTIONS (2)
  - Product use issue [Unknown]
  - Product use in unapproved indication [Unknown]
